FAERS Safety Report 9281423 (Version 1)
Quarter: 2013Q2

REPORT INFORMATION
  Report Type: Spontaneous
  Country: CN (occurrence: None)
  Receive Date: 20130502
  Receipt Date: 20130502
  Transmission Date: 20140414
  Serious: Yes (Other)
  Sender: FDA-Public Use
  Company Number: JP-2013-11117

PATIENT
  Sex: 0

DRUGS (1)
  1. OPC-41061 [Suspect]

REACTIONS (2)
  - Hypokalaemia [None]
  - Hyperuricaemia [None]
